FAERS Safety Report 8472251-0 (Version None)
Quarter: 2012Q2

REPORT INFORMATION
  Report Type: 
  Country: None (occurrence: None)
  Receive Date: 20120627
  Receipt Date: 20120619
  Transmission Date: 20120825
  Serious: Yes (Other)
  Sender: FDA-Public Use
  Company Number: US-JNJFOC-20120610363

PATIENT
  Age: 80 Year
  Sex: Male

DRUGS (9)
  1. DOXORUBICIN HYDROCHLORIDE [Suspect]
     Indication: DIFFUSE LARGE B-CELL LYMPHOMA
     Dosage: 8 CYCLES
     Route: 042
  2. RITUXIMAB [Suspect]
     Dosage: 7 CYCLES; RICE
     Route: 065
  3. IFOSFAMIDE [Suspect]
     Indication: DIFFUSE LARGE B-CELL LYMPHOMA
     Dosage: 7 CYCLES
     Route: 065
  4. PREDNISOLONE [Suspect]
     Indication: DIFFUSE LARGE B-CELL LYMPHOMA
     Dosage: 8 CYCLES
     Route: 065
  5. VINCRISTINE [Suspect]
     Indication: DIFFUSE LARGE B-CELL LYMPHOMA
     Dosage: 8 CYCLES
     Route: 065
  6. CARBOPLATIN [Suspect]
     Indication: DIFFUSE LARGE B-CELL LYMPHOMA
     Dosage: 7 CYCLES
     Route: 065
  7. ETOPOSIDE [Suspect]
     Indication: DIFFUSE LARGE B-CELL LYMPHOMA
     Dosage: 7 CYCLES
     Route: 065
  8. CYCLOPHOSPHAMIDE [Suspect]
     Indication: DIFFUSE LARGE B-CELL LYMPHOMA
     Dosage: 8 CYCLES
     Route: 065
  9. RITUXIMAB [Suspect]
     Indication: DIFFUSE LARGE B-CELL LYMPHOMA
     Dosage: 8 CYCLES; R-CHOP
     Route: 065

REACTIONS (2)
  - B-CELL TYPE ACUTE LEUKAEMIA [None]
  - DIFFUSE LARGE B-CELL LYMPHOMA RECURRENT [None]
